FAERS Safety Report 9850512 (Version 2)
Quarter: 2014Q1

REPORT INFORMATION
  Report Type: Report from Study
  Country: US (occurrence: US)
  Receive Date: 20140128
  Receipt Date: 20140203
  Transmission Date: 20141002
  Serious: Yes (Hospitalization)
  Sender: FDA-Public Use
  Company Number: US-009507513-1401USA011280

PATIENT
  Age: 35 Year
  Sex: Female
  Weight: 70.4 kg

DRUGS (4)
  1. VORINOSTAT [Suspect]
     Indication: ACUTE MYELOID LEUKAEMIA
     Dosage: 100 MG, BID
     Route: 048
     Dates: start: 20131124, end: 20140108
  2. VORINOSTAT [Suspect]
     Dosage: 100 MG, BID
     Route: 048
     Dates: start: 20140116, end: 20140121
  3. METHOTREXATE [Suspect]
     Indication: ACUTE MYELOID LEUKAEMIA
     Dosage: 5 MG/M2 ON DAYS 1, 3, 6 AND 11
     Route: 042
     Dates: start: 20131205, end: 20131216
  4. TACROLIMUS [Suspect]
     Indication: ACUTE MYELOID LEUKAEMIA
     Dosage: IV 0.03 MG/KG BEGINNING ON DAY -3 OR 0.045 MG/KG BEGINNING OF PO BID DAY -3
     Route: 042
     Dates: start: 20131201, end: 20140121

REACTIONS (2)
  - Non-cardiac chest pain [Recovered/Resolved]
  - Anaemia [Recovered/Resolved]
